FAERS Safety Report 20703025 (Version 3)
Quarter: 2023Q1

REPORT INFORMATION
  Report Type: Spontaneous
  Country: FR (occurrence: FR)
  Receive Date: 20220413
  Receipt Date: 20230206
  Transmission Date: 20230417
  Serious: Yes (Hospitalization)
  Sender: FDA-Public Use
  Company Number: FR-AFSSAPS-PP20220281

PATIENT
  Age: 36 Year
  Sex: Male

DRUGS (8)
  1. IBUPROFEN [Suspect]
     Active Substance: IBUPROFEN
     Indication: Pain
     Dosage: 400MG IN ONE TAKE
     Route: 048
     Dates: start: 20211220, end: 20211220
  2. ULTRAVIST [Suspect]
     Active Substance: IOPROMIDE
     Indication: Computerised tomogram
     Dosage: 1DF
     Route: 042
     Dates: start: 20211222, end: 20211222
  3. PHLOROGLUCINOL\1,3,5-TRIMETHOXYBENZENE [Suspect]
     Active Substance: PHLOROGLUCINOL\1,3,5-TRIMETHOXYBENZENE
     Indication: Pain
     Dosage: 40 MG+40 ?G/4 ML (SINGLE ADMINISTRATION OF 2 VIALS OF 40MG) ()
     Route: 042
     Dates: start: 20211222, end: 20211222
  4. PROPOFOL [Suspect]
     Active Substance: PROPOFOL
     Indication: General anaesthesia
     Dosage: 30 MG RENEWED 7X
     Route: 042
     Dates: start: 20211224, end: 20211224
  5. ONDANSETRON [Suspect]
     Active Substance: ONDANSETRON
     Indication: Nausea
     Dosage: 4MG SINGLE DOSE
     Route: 042
     Dates: start: 20211224, end: 20211224
  6. CEFUROXIME SODIUM [Suspect]
     Active Substance: CEFUROXIME SODIUM
     Indication: Infection
     Dosage: 1DF
     Route: 042
     Dates: start: 20211224, end: 20211224
  7. REMIFENTANIL HYDROCHLORIDE [Suspect]
     Active Substance: REMIFENTANIL HYDROCHLORIDE
     Indication: General anaesthesia
     Dosage: 2 MICROGRAMS RENEWS 4 TIMES
     Route: 042
     Dates: start: 20211224, end: 20211224
  8. DROPERIDOL [Suspect]
     Active Substance: DROPERIDOL
     Indication: Nausea
     Dosage: 1.25 MG SINGLE DOSE
     Route: 042
     Dates: start: 20211224, end: 20211224

REACTIONS (1)
  - Fixed eruption [Recovered/Resolved]

NARRATIVE: CASE EVENT DATE: 20211224
